FAERS Safety Report 8548674-8 (Version None)
Quarter: 2012Q3

REPORT INFORMATION
  Report Type: 
  Country: None (occurrence: None)
  Receive Date: 20120717
  Receipt Date: 20120704
  Transmission Date: 20120928
  Serious: Yes (Hospitalization)
  Sender: FDA-Public Use
  Company Number: MPS1-1000731

PATIENT
  Age: 5 Year
  Sex: Male
  Weight: 20.6 kg

DRUGS (8)
  1. SPIRONOLACTONE [Concomitant]
  2. ALDURAZYME [Suspect]
     Indication: MUCOPOLYSACCHARIDOSIS
     Dosage: 0.81 MG/KG, QW, INTRAVENOUS
     Route: 042
     Dates: start: 20090201
  3. FLUTICASONE PROPIONATE/SALMETEROL [Concomitant]
  4. SINGULAIR [Concomitant]
  5. FUROSEMIDE [Concomitant]
  6. HYDROXYZINE [Concomitant]
  7. ACETAMINOPHEN [Concomitant]
  8. PREDNISONE TAB [Concomitant]

REACTIONS (1)
  - SEPSIS [None]
